FAERS Safety Report 10009559 (Version 2)
Quarter: 2014Q1

REPORT INFORMATION
  Report Type: Spontaneous
  Country: US (occurrence: US)
  Receive Date: 20140312
  Receipt Date: 20140312
  Transmission Date: 20141002
  Serious: Yes (Other)
  Sender: FDA-Public Use
  Company Number: US-INCYTE CORPORATION-2012IN001018

PATIENT
  Age: 49 Year
  Sex: Male

DRUGS (8)
  1. JAKAFI [Suspect]
     Indication: MYELOFIBROSIS
     Dosage: 10 MG, BID
     Route: 048
     Dates: start: 20120511
  2. JAKAFI [Suspect]
     Dosage: 5 MG, BID
     Dates: end: 20120831
  3. TRAMADOL [Concomitant]
     Dosage: 50 MG, TID
  4. ALLOPURINOL [Concomitant]
     Dosage: 300 MG, QD
  5. MOTRIN [Concomitant]
     Dosage: 400 MG, BID
  6. SYNTHROID [Concomitant]
     Dosage: 100 MCG, QD
  7. ARANESP [Concomitant]
  8. DANAZOL [Concomitant]

REACTIONS (3)
  - Haemoglobin decreased [Unknown]
  - Platelet count decreased [Unknown]
  - Haematocrit decreased [Unknown]
